FAERS Safety Report 16337145 (Version 1)
Quarter: 2019Q2

REPORT INFORMATION
  Report Type: Spontaneous
  Country: US (occurrence: US)
  Receive Date: 20190520
  Receipt Date: 20190520
  Transmission Date: 20190711
  Serious: Yes (Disabling)
  Sender: FDA-Public Use
  Company Number: None

PATIENT
  Age: 36 Year
  Sex: Female
  Weight: 55.8 kg

DRUGS (4)
  1. FLUCONAZOLE 150 MG [Suspect]
     Active Substance: FLUCONAZOLE
     Indication: VULVOVAGINAL MYCOTIC INFECTION
     Dosage: ?          QUANTITY:1 TABLET(S);?
     Route: 048
     Dates: start: 20190514, end: 20190514
  2. ZOLPIDEM TARTRATE. [Concomitant]
     Active Substance: ZOLPIDEM TARTRATE
  3. IBUPROFEN. [Concomitant]
     Active Substance: IBUPROFEN
  4. PRED/LIDOC/BANSOP [Concomitant]

REACTIONS (8)
  - Tongue ulceration [None]
  - Application site pain [None]
  - Hypophagia [None]
  - Oral pain [None]
  - Weight decreased [None]
  - Scab [None]
  - Lip ulceration [None]
  - Angina bullosa haemorrhagica [None]

NARRATIVE: CASE EVENT DATE: 20190516
